FAERS Safety Report 6313043-8 (Version None)
Quarter: 2009Q3

REPORT INFORMATION
  Report Type: 
  Country: None (occurrence: None)
  Receive Date: 20090818
  Receipt Date: 20090626
  Transmission Date: 20100115
  Serious: Yes (Other)
  Sender: FDA-Public Use
  Company Number: US-BRISTOL-MYERS SQUIBB COMPANY-14575021

PATIENT
  Age: 60 Year
  Sex: Female
  Weight: 65 kg

DRUGS (1)
  1. GLUCOVANCE [Suspect]
     Dosage: 1 DOSAGE FORM = 2.5MG/500MG; INITIALLY TAKEN GLUCOVANCE 1.25MG/250 BID

REACTIONS (6)
  - ANGER [None]
  - BACK PAIN [None]
  - BLOOD GLUCOSE INCREASED [None]
  - CONSTIPATION [None]
  - JOINT STIFFNESS [None]
  - SKIN ULCER [None]
